FAERS Safety Report 10467034 (Version 3)
Quarter: 2015Q1

REPORT INFORMATION
  Report Type: Spontaneous
  Country: US (occurrence: US)
  Receive Date: 20140922
  Receipt Date: 20150326
  Transmission Date: 20150720
  Serious: Yes (Death, Hospitalization, Other)
  Sender: FDA-Public Use
  Company Number: US-MERCK-1409USA009901

PATIENT
  Sex: Male
  Weight: 108.84 kg

DRUGS (5)
  1. LANSOPRAZOLE. [Concomitant]
     Active Substance: LANSOPRAZOLE
     Indication: HYPERTENSION
     Dosage: 30 MG, QD
     Route: 048
     Dates: start: 20100321, end: 201308
  2. BENAZEPRIL HYDROCHLORIDE (+) HYDROCHLOROTHIAZIDE [Concomitant]
     Indication: HYPERTENSION
     Dosage: 20/12.5
     Route: 048
     Dates: start: 20070424, end: 201308
  3. SIMVASTATIN. [Concomitant]
     Active Substance: SIMVASTATIN
     Indication: HYPERLIPIDAEMIA
     Dosage: 10 MG, QD
     Route: 048
     Dates: start: 20080302, end: 201308
  4. TERAZOSIN [Concomitant]
     Active Substance: TERAZOSIN\TERAZOSIN HYDROCHLORIDE
     Indication: HYPERTENSION
     Dosage: 10 MG, QD
     Route: 048
     Dates: start: 20090808, end: 201308
  5. JANUVIA [Suspect]
     Active Substance: SITAGLIPTIN PHOSPHATE
     Indication: TYPE 2 DIABETES MELLITUS
     Dosage: 100 MG, QD
     Route: 048
     Dates: start: 20111024, end: 20130823

REACTIONS (34)
  - Metastases to bone [Unknown]
  - Stent placement [Unknown]
  - Sepsis [Unknown]
  - Acute hepatic failure [Unknown]
  - Splenomegaly [Unknown]
  - Atelectasis [Unknown]
  - Pulmonary fibrosis [Unknown]
  - Pancreatic carcinoma metastatic [Unknown]
  - Wheezing [Unknown]
  - Bile duct obstruction [Unknown]
  - Haemorrhagic cyst [Unknown]
  - Device related infection [Unknown]
  - Death [Fatal]
  - Deep vein thrombosis [Unknown]
  - Pancreatitis [Unknown]
  - Stent placement [Unknown]
  - Pneumobilia [Unknown]
  - Bile duct stent insertion [Unknown]
  - Hypokalaemia [Unknown]
  - Device occlusion [Not Recovered/Not Resolved]
  - Renal failure [Unknown]
  - Anaemia macrocytic [Unknown]
  - Device occlusion [Unknown]
  - Thrombocytopenia [Unknown]
  - Coronary angioplasty [Unknown]
  - Pleural effusion [Unknown]
  - Prostatomegaly [Unknown]
  - Metastases to liver [Unknown]
  - Hypokalaemia [Unknown]
  - Device related infection [Unknown]
  - Stent placement [Not Recovered/Not Resolved]
  - Ascites [Unknown]
  - Coronary artery disease [Unknown]
  - Hyponatraemia [Unknown]

NARRATIVE: CASE EVENT DATE: 2011
